FAERS Safety Report 25100634 (Version 1)
Quarter: 2025Q1

REPORT INFORMATION
  Report Type: Spontaneous
  Country: AT (occurrence: AT)
  Receive Date: 20250320
  Receipt Date: 20250320
  Transmission Date: 20250409
  Serious: Yes (Other)
  Sender: BIOVITRUM
  Company Number: AT-BIOVITRUM-2025-AT-003693

PATIENT
  Age: 16 Year

DRUGS (4)
  1. ANAKINRA [Suspect]
     Active Substance: ANAKINRA
     Indication: Chronic infantile neurological cutaneous and articular syndrome
  2. ANAKINRA [Suspect]
     Active Substance: ANAKINRA
  3. ANAKINRA [Suspect]
     Active Substance: ANAKINRA
  4. CANAKINUMAB [Concomitant]
     Active Substance: CANAKINUMAB
     Indication: Product used for unknown indication

REACTIONS (5)
  - Cutaneous amyloidosis [Recovered/Resolved]
  - Injection site pain [Unknown]
  - Stress [Unknown]
  - Off label use [Unknown]
  - Deafness neurosensory [Unknown]
